FAERS Safety Report 13028589 (Version 2)
Quarter: 2016Q4

REPORT INFORMATION
  Report Type: Report from Study
  Country: DE (occurrence: DE)
  Receive Date: 20161214
  Receipt Date: 20161228
  Transmission Date: 20170207
  Serious: Yes (Death, Hospitalization)
  Sender: FDA-Public Use
  Company Number: DE-ROCHE-1866432

PATIENT
  Age: 60 Year
  Sex: Female
  Weight: 45 kg

DRUGS (3)
  1. ATEZOLIZUMAB [Suspect]
     Active Substance: ATEZOLIZUMAB
     Indication: NON-SMALL CELL LUNG CANCER STAGE IV
     Dosage: DATE OF MOST RECENT DOSE PRIOR TO THE EVENT ONSET: 18/NOV/2016
     Route: 042
     Dates: start: 20161007
  2. PACLITAXEL. [Suspect]
     Active Substance: PACLITAXEL
     Indication: NON-SMALL CELL LUNG CANCER STAGE IV
     Dosage: DATE OF MOST RECENT DOSE PRIOR TO THE EVENT ONSET: 18/NOV/2016 OF 286 MG?DOSE PER PROTOCOL
     Route: 042
     Dates: start: 20161007
  3. CARBOPLATIN. [Suspect]
     Active Substance: CARBOPLATIN
     Indication: NON-SMALL CELL LUNG CANCER STAGE IV
     Dosage: DATE OF MOST RECENT DOSE PRIOR TO THE EVENT ONSET: 18/NOV/2016 OF 630.90 MG?TARGET AREA UNDER THE CO
     Route: 042
     Dates: start: 20161007

REACTIONS (1)
  - Thrombocytopenia [Fatal]

NARRATIVE: CASE EVENT DATE: 20161208
